FAERS Safety Report 14418996 (Version 1)
Quarter: 2018Q1

REPORT INFORMATION
  Report Type: Spontaneous
  Country: HR (occurrence: HR)
  Receive Date: 20180122
  Receipt Date: 20180122
  Transmission Date: 20180509
  Serious: Yes (Other)
  Sender: FDA-Public Use
  Company Number: HR-JUBILANT CADISTA PHARMACEUTICALS-2018JUB00008

PATIENT
  Age: 32 Year
  Sex: Female

DRUGS (1)
  1. OLANZAPINE. [Suspect]
     Active Substance: OLANZAPINE
     Indication: SCHIZOPHRENIA
     Dosage: 210 MG, ONCE
     Route: 065

REACTIONS (2)
  - Oedema peripheral [Recovered/Resolved]
  - Post-injection delirium sedation syndrome [Recovered/Resolved]
